FAERS Safety Report 4939039-6 (Version None)
Quarter: 2006Q1

REPORT INFORMATION
  Report Type: 
  Country: None (occurrence: None)
  Receive Date: 20060309
  Receipt Date: 20060227
  Transmission Date: 20060701
  Serious: Yes (Death)
  Sender: FDA-Public Use
  Company Number: US-MERCK-0602USA05936

PATIENT
  Age: 47 Year
  Sex: Male
  Weight: 106 kg

DRUGS (4)
  1. VIOXX [Suspect]
     Indication: BACK PAIN
     Route: 048
     Dates: start: 19990916
  2. VIOXX [Suspect]
     Route: 048
     Dates: start: 19990916
  3. VIOXX [Suspect]
     Route: 048
     Dates: start: 19990916
  4. VIOXX [Suspect]
     Route: 048
     Dates: start: 20010328

REACTIONS (6)
  - ACUTE MYOCARDIAL INFARCTION [None]
  - ARTHRALGIA [None]
  - BLOOD PRESSURE INCREASED [None]
  - CHEST PAIN [None]
  - HEPATITIS [None]
  - HYPOAESTHESIA [None]
